FAERS Safety Report 23947445 (Version 2)
Quarter: 2024Q2

REPORT INFORMATION
  Report Type: Spontaneous
  Country: JP (occurrence: JP)
  Receive Date: 20240606
  Receipt Date: 20240630
  Transmission Date: 20240716
  Serious: Yes (Hospitalization)
  Sender: FDA-Public Use
  Company Number: JP-Eisai-202402555_LEN-EC_P_1

PATIENT
  Sex: Female

DRUGS (2)
  1. LENVIMA [Suspect]
     Active Substance: LENVATINIB
     Indication: Endometrial cancer
     Route: 048
     Dates: start: 20240319, end: 20240529
  2. KEYTRUDA [Suspect]
     Active Substance: PEMBROLIZUMAB
     Indication: Endometrial cancer
     Route: 041
     Dates: start: 20240314, end: 20240529

REACTIONS (6)
  - Intestinal obstruction [Recovering/Resolving]
  - Ascites [Unknown]
  - Pleural effusion [Unknown]
  - Fistula [Unknown]
  - Hydronephrosis [Unknown]
  - Renal impairment [Unknown]

NARRATIVE: CASE EVENT DATE: 20240529
